FAERS Safety Report 11527602 (Version 1)
Quarter: 2015Q3

REPORT INFORMATION
  Report Type: Spontaneous
  Country: US (occurrence: US)
  Receive Date: 20150903
  Receipt Date: 20150903
  Transmission Date: 20151125
  Serious: No
  Sender: FDA-Public Use
  Company Number: US-ELI_LILLY_AND_COMPANY-US200905005576

PATIENT
  Sex: Male

DRUGS (21)
  1. CALCIUM [Concomitant]
     Active Substance: CALCIUM
     Dosage: 100 UNK, UNK
  2. MAGNESIUM [Concomitant]
     Active Substance: MAGNESIUM
     Dosage: 800 U, 2/D
  3. HUMALOG [Suspect]
     Active Substance: INSULIN LISPRO
     Dosage: UNK, UNK
     Dates: start: 2005
  4. DIGITALIS [Concomitant]
     Active Substance: DIGITALIS
  5. CARDIZEM [Concomitant]
     Active Substance: DILTIAZEM HYDROCHLORIDE
  6. MACROBID [Concomitant]
     Active Substance: NITROFURANTOIN\NITROFURANTOIN MONOHYDRATE
  7. MAALOX ANTACID [Concomitant]
     Active Substance: ALUMINUM HYDROXIDE\DIMETHICONE\MAGNESIUM HYDROXIDE
     Dosage: UNK, AS NEEDED
  8. ATIVAN [Concomitant]
     Active Substance: LORAZEPAM
  9. POTASSIUM [Concomitant]
     Active Substance: POTASSIUM
  10. PRILOSEC [Concomitant]
     Active Substance: OMEPRAZOLE MAGNESIUM
     Indication: ABDOMINAL DISCOMFORT
  11. LASIX [Concomitant]
     Active Substance: FUROSEMIDE
     Dosage: 40 MG, 2/D
  12. LANTUS [Concomitant]
     Active Substance: INSULIN GLARGINE
     Dosage: 120 U, EACH EVENING
  13. PRANDIN [Concomitant]
     Active Substance: REPAGLINIDE
  14. CARAFATE [Concomitant]
     Active Substance: SUCRALFATE
  15. LANTUS [Concomitant]
     Active Substance: INSULIN GLARGINE
     Dosage: UNK, AS NEEDED
  16. VITAMIN C [Concomitant]
     Active Substance: ASCORBIC ACID
  17. AMARYL [Concomitant]
     Active Substance: GLIMEPIRIDE
  18. SPIRONOLACTONE. [Concomitant]
     Active Substance: SPIRONOLACTONE
     Dosage: 25 MG, 2/D
  19. DIOVAN [Concomitant]
     Active Substance: VALSARTAN
  20. VITAMIN A [Concomitant]
     Active Substance: VITAMIN A
  21. ZINC [Concomitant]
     Active Substance: ZINC\ZINC CHLORIDE

REACTIONS (5)
  - Fluid retention [Unknown]
  - Localised infection [Recovering/Resolving]
  - Cellulitis [Recovering/Resolving]
  - Fungal skin infection [Recovered/Resolved]
  - Hypertension [Not Recovered/Not Resolved]

NARRATIVE: CASE EVENT DATE: 2004
